FAERS Safety Report 6500024-4 (Version None)
Quarter: 2009Q4

REPORT INFORMATION
  Report Type: 
  Country: None (occurrence: None)
  Receive Date: 20091216
  Receipt Date: 20091207
  Transmission Date: 20100525
  Serious: Yes (Other)
  Sender: FDA-Public Use
  Company Number: US-TYCO HEALTHCARE/MALLINCKRODT-T200902209

PATIENT

DRUGS (4)
  1. TECHNESCAN [Suspect]
     Indication: BONE SCAN
     Dosage: UNK
     Route: 042
     Dates: start: 20091116, end: 20091116
  2. ULTRA-TECHNEKOW [Suspect]
     Indication: BONE SCAN
     Dosage: 27.2 MCI
     Route: 042
     Dates: start: 20091116, end: 20091116
  3. AMIODARONE HCL [Suspect]
     Route: 042
  4. NORMAL SALINE [Suspect]
     Dosage: 5 ML, SINGLE

REACTIONS (3)
  - DRUG ADMINISTRATION ERROR [None]
  - EXTRAVASATION [None]
  - PHLEBITIS [None]
